FAERS Safety Report 10419508 (Version 1)
Quarter: 2014Q3

REPORT INFORMATION
  Report Type: Spontaneous
  Country: ES (occurrence: ES)
  Receive Date: 20140829
  Receipt Date: 20140829
  Transmission Date: 20150326
  Serious: Yes (Death, Other)
  Sender: FDA-Public Use
  Company Number: ES-UCBSA-2014009866

PATIENT
  Age: 25 Year
  Sex: Male

DRUGS (4)
  1. MINURIN [Concomitant]
     Indication: NEPHROGENIC DIABETES INSIPIDUS
     Dosage: UNK UNK, ONCE DAILY (QD)
     Route: 048
     Dates: end: 20130413
  2. HIDROCORTISONA [Concomitant]
     Indication: HYPOPITUITARISM
     Dosage: UNK UNK, ONCE DAILY (QD)
     Route: 048
     Dates: start: 200612, end: 20130413
  3. KEPPRA [Suspect]
     Active Substance: LEVETIRACETAM
     Indication: CONVULSION
     Dosage: 2 G, ONCE DAILY (QD)
     Route: 048
     Dates: start: 20130223, end: 20130301
  4. EUTIROX [Concomitant]
     Active Substance: LEVOTHYROXINE SODIUM
     Indication: HYPOPITUITARISM
     Dosage: UNK UNK, ONCE DAILY (QD)
     Route: 048
     Dates: start: 200007, end: 20130413

REACTIONS (3)
  - Thrombocytopenia [Recovered/Resolved]
  - Somnolence [Recovered/Resolved]
  - Status epilepticus [Fatal]

NARRATIVE: CASE EVENT DATE: 2013
